FAERS Safety Report 8993347 (Version 2)
Quarter: 2013Q1

REPORT INFORMATION
  Report Type: Spontaneous
  Country: US (occurrence: US)
  Receive Date: 20130102
  Receipt Date: 20130130
  Transmission Date: 20140127
  Serious: Yes (Hospitalization)
  Sender: FDA-Public Use
  Company Number: US-INCYTE CORPORATION-2012IN002714

PATIENT
  Age: 45 Year
  Sex: Female
  Weight: 67.57 kg

DRUGS (8)
  1. JAKAFI [Suspect]
     Indication: MYELOFIBROSIS
     Dosage: 10 MG, Q12H
     Route: 048
     Dates: start: 20120703, end: 20121214
  2. JAKAFI [Suspect]
     Indication: POLYCYTHAEMIA VERA
  3. JAKAFI [Suspect]
     Indication: HEPATOSPLENOMEGALY
  4. HYDROXYUREA [Concomitant]
  5. AMBIEN [Concomitant]
  6. HYDROXYZINE [Concomitant]
  7. ATENOLOL [Concomitant]
  8. PROZAC [Concomitant]

REACTIONS (1)
  - Acute myeloid leukaemia [Not Recovered/Not Resolved]
